FAERS Safety Report 8990996 (Version 1)
Quarter: 2012Q4

REPORT INFORMATION
  Report Type: Spontaneous
  Country: US (occurrence: None)
  Receive Date: 20121220
  Receipt Date: 20121220
  Transmission Date: 20130627
  Serious: Yes (Other)
  Sender: FDA-Public Use
  Company Number: JPI-P-027124

PATIENT
  Age: 58 Year
  Sex: Female

DRUGS (1)
  1. XYREM (500 MILLIGRAM/MILLILITERS, SOLUTION)(SODIUM OXYBATE) [Suspect]
     Indication: FIBROMYALGIA
     Dosage: (2.25 gm, 2 in 1 D)
     Route: 048
     Dates: start: 20120504, end: 2012

REACTIONS (4)
  - Respiratory disorder [None]
  - Insomnia [None]
  - Sensation of heaviness [None]
  - Coma [None]
